FAERS Safety Report 5587969-7 (Version None)
Quarter: 2008Q1

REPORT INFORMATION
  Report Type: 
  Country: None (occurrence: None)
  Receive Date: 20080108
  Receipt Date: 20080102
  Transmission Date: 20080703
  Serious: Yes (Other)
  Sender: FDA-Public Use
  Company Number: CHNY2008NL00448

PATIENT

DRUGS (1)
  1. OTRIVIN [Suspect]
     Dosage: 10 ML EVERY 8 TO 9 DAYS, NASAL
     Route: 045
     Dates: start: 19810101

REACTIONS (3)
  - DRUG DEPENDENCE [None]
  - INCORRECT DRUG ADMINISTRATION DURATION [None]
  - INTENTIONAL DRUG MISUSE [None]
